FAERS Safety Report 11752897 (Version 2)
Quarter: 2016Q1

REPORT INFORMATION
  Report Type: Spontaneous
  Country: US (occurrence: US)
  Receive Date: 20151119
  Receipt Date: 20160111
  Transmission Date: 20160525
  Serious: Yes (Hospitalization, Other)
  Sender: FDA-Public Use
  Company Number: US-ASTRAZENECA-2015SF10584

PATIENT
  Sex: Female

DRUGS (8)
  1. PROMETHAZINE [Concomitant]
     Active Substance: PROMETHAZINE\PROMETHAZINE HYDROCHLORIDE
     Indication: DYSPEPSIA
  2. SYMBICORT [Suspect]
     Active Substance: BUDESONIDE\FORMOTEROL FUMARATE DIHYDRATE
     Indication: ASTHMA
     Dosage: 160/4.5 MCG 120 INHALATIONS ONE OR ONE AND A HALF PUFFS, AND SOMETIMES IN THE EVENING
     Route: 055
  3. SYNTHROID [Concomitant]
     Active Substance: LEVOTHYROXINE SODIUM
     Route: 048
     Dates: start: 2004
  4. FAMOTIDINE. [Concomitant]
     Active Substance: FAMOTIDINE
     Dosage: 25 MG 2 TIMES IN THE MORNING AND IF SHE HAD REFLUX LATER SHE WOULD TAKE 2 MORE
  5. SYMBICORT [Suspect]
     Active Substance: BUDESONIDE\FORMOTEROL FUMARATE DIHYDRATE
     Indication: BRONCHITIS
     Dosage: 160/4.5 MCG 120 INHALATIONS ONE OR ONE AND A HALF PUFFS, AND SOMETIMES IN THE EVENING
     Route: 055
  6. SYMBICORT [Suspect]
     Active Substance: BUDESONIDE\FORMOTEROL FUMARATE DIHYDRATE
     Indication: WHEEZING
     Dosage: 160/4.5 MCG 120 INHALATIONS ONE OR ONE AND A HALF PUFFS, AND SOMETIMES IN THE EVENING
     Route: 055
  7. PROAIR HFA [Concomitant]
     Active Substance: ALBUTEROL SULFATE
  8. PROMETHAZINE [Concomitant]
     Active Substance: PROMETHAZINE\PROMETHAZINE HYDROCHLORIDE
     Indication: VOMITING

REACTIONS (29)
  - Intestinal polyp [Unknown]
  - Nasal congestion [Unknown]
  - Oral fungal infection [Unknown]
  - Parkinson^s disease [Unknown]
  - Cystitis noninfective [Unknown]
  - Wheezing [Unknown]
  - Dyspnoea [Unknown]
  - Musculoskeletal discomfort [Unknown]
  - Urinary incontinence [Unknown]
  - Local swelling [Unknown]
  - Candida infection [Unknown]
  - Dysphonia [Unknown]
  - Pneumonia [Unknown]
  - Suicidal ideation [Unknown]
  - Dyspepsia [Unknown]
  - Pain [Unknown]
  - Torticollis [Unknown]
  - Diabetes mellitus [Unknown]
  - Gastrooesophageal reflux disease [Unknown]
  - Urinary tract infection [Unknown]
  - Vomiting [Unknown]
  - Anxiety [Unknown]
  - Off label use [Unknown]
  - Intentional product misuse [Unknown]
  - Bronchitis [Unknown]
  - Oral discomfort [Unknown]
  - Intentional device misuse [Unknown]
  - Drug dose omission [Unknown]
  - Product quality issue [Unknown]
